FAERS Safety Report 9303982 (Version 1)
Quarter: 2013Q2

REPORT INFORMATION
  Report Type: Spontaneous
  Country: US (occurrence: US)
  Receive Date: 20130522
  Receipt Date: 20130522
  Transmission Date: 20140414
  Serious: Yes (Other)
  Sender: FDA-Public Use
  Company Number: PHHY2013US050973

PATIENT
  Age: 62 Year
  Sex: Female

DRUGS (1)
  1. HYDROXYCHLOROQUINE [Suspect]
     Indication: SYSTEMIC LUPUS ERYTHEMATOSUS
     Dosage: 8.7 MG/KG FOR 3.5 YEARS (CUMULATIVE DOSE 511G)

REACTIONS (5)
  - Nephropathy [Unknown]
  - Retinopathy [Unknown]
  - Scotoma [Unknown]
  - Retinal disorder [Unknown]
  - Overdose [Unknown]
